FAERS Safety Report 8463156-X (Version None)
Quarter: 2012Q2

REPORT INFORMATION
  Report Type: 
  Country: None (occurrence: None)
  Receive Date: 20120323
  Receipt Date: 20110921
  Transmission Date: 20120825
  Serious: Yes (Hospitalization)
  Sender: FDA-Public Use
  Company Number: 163-21880-11092768

PATIENT
  Age: 82 Year
  Sex: Female

DRUGS (9)
  1. VITAMIN D [Concomitant]
  2. ASPIRIN [Concomitant]
  3. SYNTHROID [Concomitant]
  4. ATACAND [Concomitant]
  5. LENALIDOMIDE [Suspect]
     Indication: AMYLOIDOSIS
     Dosage: 15 MG, PO;  10 MG, PO; 5 MG, DAILY X 21 DAYS, PO
     Route: 048
     Dates: start: 20080701
  6. LENALIDOMIDE [Suspect]
     Indication: AMYLOIDOSIS
     Dosage: 15 MG, PO;  10 MG, PO; 5 MG, DAILY X 21 DAYS, PO
     Route: 048
     Dates: start: 20100401
  7. LENALIDOMIDE [Suspect]
     Indication: AMYLOIDOSIS
     Dosage: 15 MG, PO;  10 MG, PO; 5 MG, DAILY X 21 DAYS, PO
     Route: 048
     Dates: start: 20090701
  8. DEXAMETHASONE [Concomitant]
  9. MINERALS (MINERALS NOS) [Concomitant]

REACTIONS (1)
  - GOUT [None]
